FAERS Safety Report 19237372 (Version 1)
Quarter: 2021Q2

REPORT INFORMATION
  Report Type: Spontaneous
  Country: NL (occurrence: NL)
  Receive Date: 20210510
  Receipt Date: 20210510
  Transmission Date: 20210717
  Serious: Yes (Hospitalization, Other)
  Sender: FDA-Public Use
  Company Number: NL-AUROBINDO-AUR-APL-2021-018661

PATIENT
  Age: 55 Year
  Sex: Male
  Weight: 82.5 kg

DRUGS (2)
  1. COMIRNATY [Suspect]
     Active Substance: TOZINAMERAN
     Indication: COVID-19 IMMUNISATION
     Dosage: 1 DOSAGE FORM
     Route: 065
     Dates: start: 20210403
  2. IBUPROFEN 400MG FILM COATED TABLETS [Suspect]
     Active Substance: IBUPROFEN
     Indication: HEADACHE
     Dosage: UNK
     Route: 065
     Dates: start: 20210404

REACTIONS (9)
  - Stridor [Recovering/Resolving]
  - Fatigue [Not Recovered/Not Resolved]
  - Drug hypersensitivity [Recovering/Resolving]
  - Pruritus [Recovering/Resolving]
  - Erythema [Recovering/Resolving]
  - Headache [Recovered/Resolved]
  - Angioedema [Recovering/Resolving]
  - Anaphylactic reaction [Recovering/Resolving]
  - Dysphonia [Recovering/Resolving]

NARRATIVE: CASE EVENT DATE: 20210403
